FAERS Safety Report 16073474 (Version 10)
Quarter: 2022Q1

REPORT INFORMATION
  Report Type: Spontaneous
  Country: FR (occurrence: FR)
  Receive Date: 20190314
  Receipt Date: 20220308
  Transmission Date: 20220423
  Serious: Yes (Hospitalization, Other)
  Sender: FDA-Public Use
  Company Number: FR-EMA-DD-20180830-NSINGHEVHP-144649

PATIENT
  Age: 23 Year
  Sex: Male
  Weight: 49 kg

DRUGS (37)
  1. VANCOMYCIN [Suspect]
     Active Substance: VANCOMYCIN
     Indication: Abscess
     Dosage: 2 GRAM, QD
     Route: 042
     Dates: start: 20081220, end: 20090112
  2. VANCOMYCIN [Suspect]
     Active Substance: VANCOMYCIN
     Dosage: 2 GRAM, QD
     Route: 042
     Dates: start: 20081222, end: 20090112
  3. VANCOMYCIN [Suspect]
     Active Substance: VANCOMYCIN
     Dosage: 32 GRAM
     Route: 042
     Dates: start: 20081220, end: 20090112
  4. CALCIUM CARBONATE [Suspect]
     Active Substance: CALCIUM CARBONATE
     Indication: Product used for unknown indication
     Dosage: 1 DOSAGE FORM, QD
     Route: 048
     Dates: start: 20081227
  5. CLORAZEPATE DIPOTASSIUM [Suspect]
     Active Substance: CLORAZEPATE DIPOTASSIUM
     Indication: Anxiety
     Dosage: 1 DOSAGE FORM, QD
     Route: 042
     Dates: start: 20081222, end: 20090123
  6. CLORAZEPATE DIPOTASSIUM [Suspect]
     Active Substance: CLORAZEPATE DIPOTASSIUM
     Indication: Anxiety
     Dosage: UNK UNK, QD
     Route: 042
     Dates: start: 20081222, end: 20090123
  7. LOVENOX [Suspect]
     Active Substance: ENOXAPARIN SODIUM
     Indication: Product used for unknown indication
     Dosage: 1 DOSAGE FORM, QD
     Route: 058
     Dates: start: 20081224
  8. FOLIC ACID [Suspect]
     Active Substance: FOLIC ACID
     Indication: Product used for unknown indication
     Dosage: 3 DOSAGE FORM, QD
     Route: 048
     Dates: start: 20081223
  9. FLUCONAZOLE [Suspect]
     Active Substance: FLUCONAZOLE
     Indication: Rash
     Dosage: 100 MILLIGRAM, QD
     Route: 048
     Dates: start: 20090106, end: 20090118
  10. FLUCONAZOLE [Suspect]
     Active Substance: FLUCONAZOLE
     Dosage: 200 MILLIGRAM, QD, UNK, ? PARTIR DU 19 JANVIER 200 MG/JOUR
     Route: 048
     Dates: start: 20090119, end: 20090130
  11. FLUCONAZOLE [Suspect]
     Active Substance: FLUCONAZOLE
     Dosage: 200 MILLIGRAM, BID
     Route: 048
     Dates: start: 20090106, end: 20090130
  12. EBASTINE [Suspect]
     Active Substance: EBASTINE
     Indication: Rash
     Dosage: 1 DOSAGE FORM, QD,GENERIC REPORTED AS EBASTINE
     Route: 048
     Dates: start: 20090107
  13. EBASTINE [Suspect]
     Active Substance: EBASTINE
     Dosage: UNK UNK, QD
     Route: 048
     Dates: start: 20090107
  14. ECONAZOLE NITRATE [Suspect]
     Active Substance: ECONAZOLE NITRATE
     Indication: Rash
     Dosage: 2 DOSAGE FORM
     Route: 061
     Dates: start: 20090114
  15. ECONAZOLE NITRATE [Suspect]
     Active Substance: ECONAZOLE NITRATE
     Dosage: UNK
     Route: 061
  16. SOLU-MEDROL [Suspect]
     Active Substance: METHYLPREDNISOLONE SODIUM SUCCINATE
     Indication: Crohn^s disease
     Dosage: 60 MILLIGRAM
     Route: 048
     Dates: start: 20080811
  17. SOLU-MEDROL [Suspect]
     Active Substance: METHYLPREDNISOLONE SODIUM SUCCINATE
     Dosage: 100 MILLIGRAM
     Route: 042
     Dates: start: 20080120
  18. CALCIUM CARBONATE\CITRIC ACID MONOHYDRATE [Suspect]
     Active Substance: CALCIUM CARBONATE\CITRIC ACID MONOHYDRATE
     Indication: Product used for unknown indication
     Dosage: 1 DOSAGE FORM, QD
     Route: 048
     Dates: start: 20081227
  19. REMICADE [Suspect]
     Active Substance: INFLIXIMAB
     Indication: Crohn^s disease
     Dosage: UNK
     Route: 042
     Dates: start: 20081222, end: 20090112
  20. REMICADE [Suspect]
     Active Substance: INFLIXIMAB
     Indication: Abscess
     Dosage: 100 MILLIGRAM
     Route: 042
     Dates: start: 20090120
  21. CILASTATIN SODIUM\IMIPENEM [Suspect]
     Active Substance: CILASTATIN SODIUM\IMIPENEM
     Indication: Abscess
     Dosage: UNK
     Route: 042
     Dates: start: 20081222, end: 20090112
  22. CILASTATIN SODIUM\IMIPENEM [Suspect]
     Active Substance: CILASTATIN SODIUM\IMIPENEM
     Indication: Parenteral nutrition
     Dosage: UNK
  23. SOLU-MEDROL [Suspect]
     Active Substance: METHYLPREDNISOLONE SODIUM SUCCINATE
     Indication: Crohn^s disease
     Dosage: 100 MILLIGRAM
     Route: 042
     Dates: start: 20090120
  24. ALANINE [Suspect]
     Active Substance: ALANINE
     Indication: Parenteral nutrition
     Dosage: 4000 MILLILITER, QD
     Route: 041
     Dates: start: 20081228, end: 20090207
  25. ALANINE [Suspect]
     Active Substance: ALANINE
     Indication: Malnutrition
     Dosage: UNK
     Route: 041
  26. PRIMAXIN IV [Suspect]
     Active Substance: CILASTATIN SODIUM\IMIPENEM
     Indication: Abscess
     Dosage: UNK
     Route: 042
     Dates: start: 20081222, end: 20090112
  27. CALCIUM CARBONATE\CHOLECALCIFEROL [Suspect]
     Active Substance: CALCIUM CARBONATE\CHOLECALCIFEROL
     Indication: Product used for unknown indication
     Dosage: 1 DOSAGE FORM, QD
     Route: 048
     Dates: start: 20081227
  28. AMINO ACIDS\DEXTROSE\ELECTROLYTES NOS [Suspect]
     Active Substance: AMINO ACIDS\DEXTROSE\ELECTROLYTES NOS
     Indication: Malnutrition
     Dosage: 4000 MILLILITER, QD
     Route: 041
     Dates: start: 20081228, end: 20090207
  29. AMINO ACIDS\DEXTROSE\ELECTROLYTES NOS [Suspect]
     Active Substance: AMINO ACIDS\DEXTROSE\ELECTROLYTES NOS
     Indication: Parenteral nutrition
     Dosage: UNK LIPID EMULSION DRUG START PERIOD 9 (DAYS)
  30. TRANXENE [Suspect]
     Active Substance: CLORAZEPATE DIPOTASSIUM
     Indication: Anxiety
     Dosage: 1 DOSAGE FORM, QD (1 DF, QD)
     Route: 042
     Dates: start: 20081222, end: 20090123
  31. CILASTATIN SODIUM\IMIPENEM [Suspect]
     Active Substance: CILASTATIN SODIUM\IMIPENEM
     Indication: Abscess
     Dosage: UNK
     Route: 042
     Dates: start: 20081222, end: 20090112
  32. METHYLPREDNISOLONE SODIUM SUCCINATE [Suspect]
     Active Substance: METHYLPREDNISOLONE SODIUM SUCCINATE
     Indication: Crohn^s disease
     Dosage: 100 MILLIGRAM
     Route: 042
     Dates: start: 20090120
  33. METHYLPREDNISOLONE SODIUM SUCCINATE [Suspect]
     Active Substance: METHYLPREDNISOLONE SODIUM SUCCINATE
     Indication: Abscess
     Dosage: UNK
     Route: 042
     Dates: start: 20081222, end: 20091112
  34. METHYLPREDNISOLONE SODIUM SUCCINATE [Suspect]
     Active Substance: METHYLPREDNISOLONE SODIUM SUCCINATE
     Dosage: UNK
     Route: 042
     Dates: start: 20081112, end: 20091112
  35. FLUCONAZOLE [Concomitant]
     Active Substance: FLUCONAZOLE
     Indication: Rash
     Dosage: 200 MILLIGRAM, QD
     Route: 048
     Dates: start: 20090106, end: 20090130
  36. FLUCONAZOLE [Concomitant]
     Active Substance: FLUCONAZOLE
     Dosage: 100 MILLIGRAM, QD
     Route: 048
     Dates: start: 20090106, end: 20090118
  37. FLUCONAZOLE [Concomitant]
     Active Substance: FLUCONAZOLE
     Dosage: 200 MILLIGRAM, QD
     Route: 048
     Dates: start: 20090119, end: 20090130

REACTIONS (3)
  - Hepatic cytolysis [Recovering/Resolving]
  - Weight decreased [Unknown]
  - Fungal test positive [Unknown]

NARRATIVE: CASE EVENT DATE: 20090106
